FAERS Safety Report 23280475 (Version 1)
Quarter: 2023Q4

REPORT INFORMATION
  Report Type: Spontaneous
  Country: SI (occurrence: SI)
  Receive Date: 20231211
  Receipt Date: 20231211
  Transmission Date: 20240109
  Serious: Yes (Other)
  Sender: FDA-Public Use
  Company Number: SI-TOLMAR, INC.-23SI045216

PATIENT
  Age: 15 Year
  Sex: Male

DRUGS (2)
  1. JATENZO [Suspect]
     Active Substance: TESTOSTERONE UNDECANOATE
     Indication: Olfacto genital dysplasia
     Dosage: UNK
  2. JATENZO [Suspect]
     Active Substance: TESTOSTERONE UNDECANOATE
     Dosage: 1000 MILLIGRAM, Q 12 HR

REACTIONS (2)
  - Hyperprolactinaemia [Recovered/Resolved]
  - Pituitary tumour benign [Recovering/Resolving]
